FAERS Safety Report 23740548 (Version 2)
Quarter: 2024Q2

REPORT INFORMATION
  Report Type: Spontaneous
  Country: EG (occurrence: EG)
  Receive Date: 20240415
  Receipt Date: 20240429
  Transmission Date: 20240716
  Serious: Yes (Hospitalization, Other)
  Sender: FDA-Public Use
  Company Number: EG-NOVOPROD-1200719

PATIENT
  Sex: Male

DRUGS (7)
  1. INSULIN HUMAN [Suspect]
     Active Substance: INSULIN HUMAN
     Dosage: 65 IU, QD(SOMETIMES DUE TO HIGH BGL)
     Route: 058
  2. INSULIN HUMAN [Suspect]
     Active Substance: INSULIN HUMAN
     Indication: Diabetes mellitus
     Dosage: 45 IU, QD( 30 IU MORNING AND 15 IU NIGHT)
     Route: 058
  3. CIDOPHAGE [Concomitant]
     Indication: Diabetes mellitus
     Dosage: 1 TAB/DAY
  4. NEUROVIT [CYANOCOBALAMIN;IBUPROFEN;PYRIDOXINE HYDROCHLORIDE;THIAMINE H [Concomitant]
     Indication: Vitamin supplementation
     Dosage: 1 TAB./DAY
  5. LANTUS [Concomitant]
     Active Substance: INSULIN GLARGINE
     Dosage: 10-15 IU (DINNER)
     Route: 058
  6. LANTUS [Concomitant]
     Active Substance: INSULIN GLARGINE
     Indication: Diabetes mellitus
     Dosage: 15-20 IU (WITH BEGINNING HAVING THE BREAKFAST AND LUNCH)
     Route: 058
  7. DEPOVIT B12 [Concomitant]
     Indication: Vitamin supplementation
     Dosage: UNK (TWICE INJECTION/WEEKLY)

REACTIONS (6)
  - Cataract [Not Recovered/Not Resolved]
  - Retinal infiltrates [Not Recovered/Not Resolved]
  - Renal failure [Not Recovered/Not Resolved]
  - Hypoglycaemic unconsciousness [Recovered/Resolved]
  - Hypoglycaemic unconsciousness [Recovered/Resolved]
  - Hyperglycaemia [Not Recovered/Not Resolved]

NARRATIVE: CASE EVENT DATE: 20230101
